FAERS Safety Report 13333451 (Version 2)
Quarter: 2017Q1

REPORT INFORMATION
  Report Type: Spontaneous
  Country: CN (occurrence: CN)
  Receive Date: 20170314
  Receipt Date: 20170322
  Transmission Date: 20170428
  Serious: Yes (Hospitalization, Other)
  Sender: FDA-Public Use
  Company Number: CN-ASTRAZENECA-2017SE14907

PATIENT
  Age: 83 Year
  Sex: Male

DRUGS (2)
  1. ONGLYZA [Suspect]
     Active Substance: SAXAGLIPTIN HYDROCHLORIDE
     Indication: TYPE 2 DIABETES MELLITUS
     Route: 048
     Dates: start: 201606
  2. INSULIN ASPART [Concomitant]
     Active Substance: INSULIN ASPART
     Dates: start: 201605

REACTIONS (8)
  - Hypertension [Unknown]
  - Pancreatic neoplasm [Unknown]
  - Hypoglycaemia [Unknown]
  - Pneumonitis [Recovering/Resolving]
  - Intentional product misuse [Unknown]
  - Blood glucose increased [Unknown]
  - Tumour marker increased [Unknown]
  - Drug dose omission [Unknown]

NARRATIVE: CASE EVENT DATE: 2015
